FAERS Safety Report 19741841 (Version 2)
Quarter: 2021Q3

REPORT INFORMATION
  Report Type: Report from Study
  Country: None (occurrence: DE)
  Receive Date: 20210825
  Receipt Date: 20210827
  Transmission Date: 20211014
  Serious: Yes (Hospitalization)
  Sender: FDA-Public Use
  Company Number: DE-ABBVIE-21K-062-4053003-00

PATIENT
  Sex: Male
  Weight: 70 kg

DRUGS (26)
  1. GABAPENTIN CT [Concomitant]
     Indication: PRODUCT USED FOR UNKNOWN INDICATION
     Dosage: BEFORE MAVIRET THERAPY
     Dates: end: 20200620
  2. BACLOFEN DURA [Concomitant]
     Active Substance: BACLOFEN
     Dates: start: 20191104
  3. MIRTAZAPIN [Concomitant]
     Active Substance: MIRTAZAPINE
     Indication: PRODUCT USED FOR UNKNOWN INDICATION
     Dosage: BEFORE MAVIRET THERAPY
     Dates: end: 20200603
  4. MCP [Concomitant]
     Active Substance: METOCLOPRAMIDE HYDROCHLORIDE
     Indication: HEPATITIS C
     Dates: start: 20180824
  5. AMLODIPIN 1A PHARMA [Concomitant]
     Active Substance: AMLODIPINE BESYLATE
     Indication: CARDIOVASCULAR DISORDER
     Dosage: BEFORE MAVIRET THERAPY
     Dates: end: 20200603
  6. FORMOTEROL AL [Concomitant]
     Indication: PRODUCT USED FOR UNKNOWN INDICATION
     Dosage: BEFORE MAVIRET THERAPY
  7. PRAMIPEXOL [Concomitant]
     Active Substance: PRAMIPEXOLE
     Dates: start: 20191104, end: 20201123
  8. TOLPERISON [Concomitant]
     Active Substance: TOLPERISONE HYDROCHLORIDE
     Indication: PRODUCT USED FOR UNKNOWN INDICATION
     Dosage: BEFORE MAVIRET THERAPY
     Dates: end: 20191104
  9. ZOPICLON [Concomitant]
     Active Substance: ZOPICLONE
     Indication: PRODUCT USED FOR UNKNOWN INDICATION
     Dosage: 7.5 MG, BEFORE MAVIRET THERAPY
  10. NICORETTE [Concomitant]
     Active Substance: NICOTINE
     Indication: PRODUCT USED FOR UNKNOWN INDICATION
     Dates: start: 20180904
  11. BERODUAL N [Concomitant]
     Active Substance: FENOTEROL HYDROBROMIDE\IPRATROPIUM BROMIDE
     Indication: PRODUCT USED FOR UNKNOWN INDICATION
     Dosage: BEFORE MAVIRET THERAPY
  12. RALTEGRAVIR. [Concomitant]
     Active Substance: RALTEGRAVIR
     Indication: HIV INFECTION
     Route: 048
     Dates: start: 20171117
  13. METOPROLOLSUCCINAT AAA [Concomitant]
     Indication: CARDIOVASCULAR DISORDER
     Dosage: BEFORE MAVIRET THERAPY
     Dates: end: 20200603
  14. OXYCODON [Concomitant]
     Active Substance: OXYCODONE
     Indication: PRODUCT USED FOR UNKNOWN INDICATION
     Dosage: 40/20 MG
  15. OXYCODON [Concomitant]
     Active Substance: OXYCODONE
     Dates: start: 20180824
  16. MAVIRET [Suspect]
     Active Substance: GLECAPREVIR\PIBRENTASVIR
     Indication: CHRONIC HEPATITIS C
     Dosage: 100 MG GLECAPREVIR/40 MG PIBRENTASVIR TABLETS, 3 TABLETS ONCE DAILY
     Route: 048
     Dates: start: 20180809, end: 20181003
  17. EMTRICITABIN/TENOFOVIRDISOPROXIL ZENTIVA [Concomitant]
     Active Substance: EMTRICITABINE\TENOFOVIR DISOPROXIL
     Indication: HIV INFECTION
     Dosage: 200 MG EMTRICITABIN/ 245 MG TENOFOVIR
     Route: 048
     Dates: start: 20171117
  18. OXYCODON [Concomitant]
     Active Substance: OXYCODONE
     Dosage: 10/5 MG
  19. BIFITERAL [Concomitant]
     Active Substance: LACTULOSE
     Indication: PRODUCT USED FOR UNKNOWN INDICATION
     Dosage: BEFORE MAVIRET THERAPY
  20. CLOPIDOGREL [Concomitant]
     Active Substance: CLOPIDOGREL BISULFATE
     Indication: CARDIOVASCULAR DISORDER
  21. RAMIPRIL. [Concomitant]
     Active Substance: RAMIPRIL
     Indication: CARDIOVASCULAR DISORDER
     Dosage: BEFORE MAVIRET THERAPY
     Dates: end: 20200603
  22. BACLOFEN DURA [Concomitant]
     Active Substance: BACLOFEN
     Indication: PRODUCT USED FOR UNKNOWN INDICATION
     Dosage: BEFORE MAVIRET THERAPY
     Dates: end: 20191104
  23. PREGABALIN 1A PHARMA [Concomitant]
     Active Substance: PREGABALIN
     Indication: PRODUCT USED FOR UNKNOWN INDICATION
     Dates: end: 20200603
  24. OMEPRAZOL ABZ [Concomitant]
     Active Substance: OMEPRAZOLE
     Indication: PRODUCT USED FOR UNKNOWN INDICATION
     Dosage: START DATE?DURING MAVIRET THERAPY
  25. PRAMIPEXOL [Concomitant]
     Active Substance: PRAMIPEXOLE
     Indication: PRODUCT USED FOR UNKNOWN INDICATION
     Dosage: BEFORE MAVIRET THERAPY,  0.7 MG
     Dates: end: 20191104
  26. IBUPROFEN. [Concomitant]
     Active Substance: IBUPROFEN
     Indication: PRODUCT USED FOR UNKNOWN INDICATION
     Dosage: BEFORE MAVIRET THERAPY

REACTIONS (4)
  - Faecaloma [Recovered/Resolved]
  - Dyspnoea [Recovered/Resolved]
  - Depression [Not Recovered/Not Resolved]
  - Panic disorder [Not Recovered/Not Resolved]
